FAERS Safety Report 6562713-5 (Version None)
Quarter: 2010Q1

REPORT INFORMATION
  Report Type: 
  Country: None (occurrence: None)
  Receive Date: 20100130
  Receipt Date: 20091112
  Transmission Date: 20100710
  Serious: No
  Sender: FDA-Public Use
  Company Number: US-ABBOTT-09P-163-0608924-00

PATIENT
  Sex: Male
  Weight: 99.88 kg

DRUGS (3)
  1. HUMIRA [Suspect]
     Indication: ANKYLOSING SPONDYLITIS
     Route: 058
     Dates: start: 20091112
  2. HUMIRA [Suspect]
     Route: 058
  3. PERCOCET [Concomitant]
     Indication: PAIN

REACTIONS (3)
  - DRUG DOSE OMISSION [None]
  - MALAISE [None]
  - NASOPHARYNGITIS [None]
